FAERS Safety Report 10033568 (Version 1)
Quarter: 2014Q1

REPORT INFORMATION
  Report Type: Spontaneous
  Country: US (occurrence: US)
  Receive Date: 20140325
  Receipt Date: 20140325
  Transmission Date: 20141002
  Serious: No
  Sender: FDA-Public Use
  Company Number: US-BIOGENIDEC-2014BI026890

PATIENT
  Sex: Female

DRUGS (3)
  1. AVONEX [Suspect]
     Indication: MULTIPLE SCLEROSIS
     Route: 030
  2. AVONEX [Suspect]
     Indication: MULTIPLE SCLEROSIS
     Route: 030
  3. COPAXONE [Concomitant]

REACTIONS (4)
  - Pneumonia [Recovered/Resolved]
  - Nasopharyngitis [Recovered/Resolved]
  - Multiple sclerosis [Not Recovered/Not Resolved]
  - Depression [Recovered/Resolved]
